FAERS Safety Report 24449965 (Version 3)
Quarter: 2025Q1

REPORT INFORMATION
  Report Type: Report from Study
  Country: CA (occurrence: CA)
  Receive Date: 20241017
  Receipt Date: 20250327
  Transmission Date: 20250409
  Serious: Yes (Other)
  Sender: TAKEDA
  Company Number: CA-TAKEDA-2024TUS101049

PATIENT
  Age: 84 Year
  Sex: Male

DRUGS (4)
  1. VEDOLIZUMAB [Suspect]
     Active Substance: VEDOLIZUMAB
     Indication: Colitis ulcerative
  2. VEDOLIZUMAB [Suspect]
     Active Substance: VEDOLIZUMAB
     Dosage: 300 MILLIGRAM, Q4WEEKS
     Dates: start: 20241030
  3. VEDOLIZUMAB [Suspect]
     Active Substance: VEDOLIZUMAB
     Dosage: 300 MILLIGRAM, Q4WEEKS
     Dates: end: 20250317
  4. MESALAMINE [Concomitant]
     Active Substance: MESALAMINE

REACTIONS (3)
  - Colitis ulcerative [Not Recovered/Not Resolved]
  - Off label use [Unknown]
  - Treatment failure [Unknown]

NARRATIVE: CASE EVENT DATE: 20241030
